FAERS Safety Report 5711825-4 (Version None)
Quarter: 2008Q2

REPORT INFORMATION
  Report Type: 
  Country: None (occurrence: None)
  Receive Date: 20080416
  Receipt Date: 20080409
  Transmission Date: 20081010
  Serious: Yes (Death, Hospitalization, Other)
  Sender: FDA-Public Use
  Company Number: 2008US000290

PATIENT
  Age: 46 Year
  Sex: Male

DRUGS (2)
  1. PROGRAF [Suspect]
     Indication: RENAL TRANSPLANT
     Dosage: ORAL
     Route: 048
     Dates: end: 20070701
  2. CELLCEPT [Concomitant]

REACTIONS (11)
  - ARTERIAL DISORDER [None]
  - COMPLICATIONS OF TRANSPLANTED KIDNEY [None]
  - GRAFT DYSFUNCTION [None]
  - HYPOVOLAEMIC SHOCK [None]
  - MYCOTIC ANEURYSM [None]
  - PERIPHERAL ARTERY ANEURYSM [None]
  - POST PROCEDURAL HAEMORRHAGE [None]
  - POSTOPERATIVE WOUND INFECTION [None]
  - SEPSIS [None]
  - TRANSPLANT REJECTION [None]
  - VASCULAR PSEUDOANEURYSM [None]
